FAERS Safety Report 8490164-5 (Version None)
Quarter: 2012Q3

REPORT INFORMATION
  Report Type: 
  Country: None (occurrence: None)
  Receive Date: 20120705
  Receipt Date: 20120621
  Transmission Date: 20120928
  Serious: No
  Sender: FDA-Public Use
  Company Number: US-ASTRAZENECA-2012SE17182

PATIENT
  Age: 55 Year
  Sex: Male

DRUGS (2)
  1. CRESTOR [Suspect]
     Route: 048
  2. NEXIUM [Suspect]
     Route: 048

REACTIONS (7)
  - GASTRIC ULCER [None]
  - ABDOMINAL DISCOMFORT [None]
  - ULCER [None]
  - EXTRASYSTOLES [None]
  - GASTRIC DISORDER [None]
  - GASTRITIS [None]
  - DRUG DOSE OMISSION [None]
